FAERS Safety Report 20318669 (Version 3)
Quarter: 2022Q1

REPORT INFORMATION
  Report Type: Spontaneous
  Country: JP (occurrence: None)
  Receive Date: 20220110
  Receipt Date: 20220225
  Transmission Date: 20220423
  Serious: Yes (Death, Life-Threatening, Hospitalization, Other)
  Sender: FDA-Public Use
  Company Number: 2021A853513

PATIENT
  Age: 79 Year
  Sex: Female
  Weight: 40 kg

DRUGS (12)
  1. TAGRISSO [Suspect]
     Active Substance: OSIMERTINIB
     Indication: Non-small cell lung cancer
     Route: 048
     Dates: start: 20210526, end: 20210729
  2. TAGRISSO [Suspect]
     Active Substance: OSIMERTINIB
     Indication: Non-small cell lung cancer
     Route: 048
     Dates: start: 20211028, end: 20211124
  3. TAGRISSO [Suspect]
     Active Substance: OSIMERTINIB
     Indication: Non-small cell lung cancer
     Route: 048
     Dates: start: 20210805, end: 20211027
  4. NEXIUM [Concomitant]
     Active Substance: ESOMEPRAZOLE MAGNESIUM
     Dosage: DOSE UNKNOWN
     Route: 048
     Dates: start: 202104
  5. NEXIUM [Concomitant]
     Active Substance: ESOMEPRAZOLE MAGNESIUM
     Dosage: DOSE UNKNOWN
     Route: 048
     Dates: start: 202103
  6. CALCIUM CARBONATE\CHOLECALCIFEROL\MAGNESIUM CARBONATE [Concomitant]
     Active Substance: CALCIUM CARBONATE\CHOLECALCIFEROL\MAGNESIUM CARBONATE
     Indication: Non-small cell lung cancer
     Dosage: DOSE UNKNOWN
     Route: 048
     Dates: start: 20210527, end: 20211124
  7. DENOSUMAB [Concomitant]
     Active Substance: DENOSUMAB
     Indication: Non-small cell lung cancer
     Route: 058
     Dates: start: 20210528, end: 20211028
  8. BETAMETHASONE [Concomitant]
     Active Substance: BETAMETHASONE
     Indication: Metastases to central nervous system
     Route: 048
     Dates: start: 202103
  9. METHYLCOBALAMIN [Concomitant]
     Active Substance: METHYLCOBALAMIN
     Indication: Retinal degeneration
     Route: 048
  10. HYALURONATE SODIUM [Concomitant]
     Active Substance: HYALURONATE SODIUM
     Indication: Retinal degeneration
     Dosage: DOSE UNKNOWN, AS REQUIRED
     Route: 047
  11. AMLODIPINE [Concomitant]
     Active Substance: AMLODIPINE BESYLATE
     Indication: Hypertension
     Dosage: DOSE UNKNOWN
     Route: 065
  12. TELMISARTAN [Concomitant]
     Active Substance: TELMISARTAN
     Indication: Hypertension
     Dosage: DOSE UNKNOWN
     Route: 065

REACTIONS (7)
  - Cardiac failure [Fatal]
  - Brain oedema [Not Recovered/Not Resolved]
  - Cardiomyopathy [Fatal]
  - Sepsis [Not Recovered/Not Resolved]
  - Disseminated intravascular coagulation [Not Recovered/Not Resolved]
  - Rash [Recovered/Resolved]
  - General physical health deterioration [Unknown]

NARRATIVE: CASE EVENT DATE: 20210725
